FAERS Safety Report 25185605 (Version 1)
Quarter: 2025Q2

REPORT INFORMATION
  Report Type: Spontaneous
  Country: US (occurrence: US)
  Receive Date: 20250410
  Receipt Date: 20250410
  Transmission Date: 20250716
  Serious: No
  Sender: HISAMITSU PHARM
  Company Number: US-HISAMITSU-2024-US-061195

PATIENT
  Age: 72 Year
  Sex: Male
  Weight: 70.76 kg

DRUGS (7)
  1. MELOXICAM [Concomitant]
     Active Substance: MELOXICAM
  2. LEVOTHYROXINE [Concomitant]
     Active Substance: LEVOTHYROXINE
  3. SILODOSIN [Concomitant]
     Active Substance: SILODOSIN
  4. VITAMINS [Concomitant]
     Active Substance: VITAMINS
  5. COENZYME Q10 [Concomitant]
     Active Substance: DIETARY SUPPLEMENT\UBIDECARENONE
  6. CHONDROITIN SULFATE A\GLUCOSAMINE [Concomitant]
     Active Substance: CHONDROITIN SULFATE A\GLUCOSAMINE
  7. SALONPAS PAIN RELIEF [Suspect]
     Active Substance: MENTHOL\METHYL SALICYLATE
     Indication: Analgesic therapy
     Route: 061
     Dates: start: 20240801

REACTIONS (1)
  - Dry eye [Not Recovered/Not Resolved]

NARRATIVE: CASE EVENT DATE: 20241001
